FAERS Safety Report 18310107 (Version 2)
Quarter: 2020Q4

REPORT INFORMATION
  Report Type: Spontaneous
  Country: US (occurrence: US)
  Receive Date: 20200924
  Receipt Date: 20201111
  Transmission Date: 20210113
  Serious: Yes (Hospitalization)
  Sender: FDA-Public Use
  Company Number: US-009507513-2009USA008384

PATIENT
  Sex: Female
  Weight: 181 kg

DRUGS (3)
  1. INLYTA [Suspect]
     Active Substance: AXITINIB
     Indication: METASTASES TO THORAX
     Dosage: UNK
     Dates: start: 202007
  2. INLYTA [Suspect]
     Active Substance: AXITINIB
     Indication: METASTASES TO BONE
  3. KEYTRUDA [Suspect]
     Active Substance: PEMBROLIZUMAB
     Route: 042

REACTIONS (4)
  - Hypertension [Recovered/Resolved]
  - Walking aid user [Unknown]
  - Dyspnoea [Unknown]
  - Adverse event [Unknown]

NARRATIVE: CASE EVENT DATE: 2020
